FAERS Safety Report 12818956 (Version 2)
Quarter: 2017Q2

REPORT INFORMATION
  Report Type: Report from Study
  Country: BR (occurrence: BR)
  Receive Date: 20161006
  Receipt Date: 20170424
  Transmission Date: 20170830
  Serious: Yes (Hospitalization)
  Sender: FDA-Public Use
  Company Number: BR-BIOGEN-2016BI00299120

PATIENT
  Sex: Male

DRUGS (1)
  1. AVONEX [Suspect]
     Active Substance: INTERFERON BETA-1A
     Indication: MULTIPLE SCLEROSIS
     Route: 030

REACTIONS (7)
  - Cellulitis staphylococcal [Recovered/Resolved]
  - Muscular weakness [Unknown]
  - Mobility decreased [Unknown]
  - Decreased immune responsiveness [Unknown]
  - Herpes zoster [Recovered/Resolved]
  - Anal haemorrhage [Unknown]
  - Speech disorder [Unknown]
